FAERS Safety Report 5627690-X (Version None)
Quarter: 2008Q1

REPORT INFORMATION
  Report Type: 
  Country: None (occurrence: None)
  Receive Date: 20080215
  Receipt Date: 20080204
  Transmission Date: 20080703
  Serious: Yes (Other)
  Sender: FDA-Public Use
  Company Number: US-ROCHE-536134

PATIENT
  Age: 78 Year
  Sex: Female
  Weight: 84.4 kg

DRUGS (1)
  1. BONIVA [Suspect]
     Indication: OSTEOPOROSIS
     Route: 042
     Dates: start: 20071128

REACTIONS (9)
  - ABDOMINAL DISTENSION [None]
  - ABDOMINAL PAIN [None]
  - DIARRHOEA [None]
  - DIZZINESS [None]
  - INFLUENZA LIKE ILLNESS [None]
  - MYALGIA [None]
  - SPINAL COMPRESSION FRACTURE [None]
  - URINARY TRACT INFECTION [None]
  - VOMITING [None]
